FAERS Safety Report 10174507 (Version 1)
Quarter: 2014Q2

REPORT INFORMATION
  Report Type: Spontaneous
  Country: US (occurrence: None)
  Receive Date: 20140416
  Receipt Date: 20140416
  Transmission Date: 20141212
  Serious: Yes (Hospitalization)
  Sender: FDA-Public Use
  Company Number: 163-POMAL-14014799

PATIENT
  Age: 70 Year
  Sex: Female

DRUGS (12)
  1. POMALYST (POMALIDOMIDE) (4 MILLIGRAM, CAPSULES) [Suspect]
     Indication: PLASMA CELL MYELOMA
     Dosage: 4 MG, 21 IN 28 D, PO?
     Route: 048
     Dates: start: 20130619
  2. FLUOXETINE HCL (FLUOXETINE HYDROCHLORIDE) (UNKNOWN) [Concomitant]
  3. AMOX TRI-POTASSIUM CALV (UNKNOWN) [Concomitant]
  4. AZITHROMYCIN (AZITHROMYCIN) (UNKNOWN) [Concomitant]
  5. PROAIR HFA (SALBUTAMOL SULFATE) (UNKNOWN) [Concomitant]
  6. AZELASTINE HCL (AZELASTINE HYDROCHLORIDE) (UNKNOWN) [Concomitant]
  7. ZYRTEC (CETIRIZINE HYDROCHLORIDE) (UNKNOWN) [Concomitant]
  8. VITAMIN D3 (COLECALCIFEROL) (UNKNOWN) [Concomitant]
  9. MULTIVITAMINS (MULTIVITAMINS) (UNKNOWN) [Concomitant]
  10. ASPIRIN (ACETYLSALICYLIC ACID) (UNKNOWN) (ACETYLSALICYLIC ACID) [Concomitant]
  11. CITRACAL + D MAXIMUM (CITRACAL + D) (UNKNOWN) [Concomitant]
  12. PAMIDRONATE DISODIUM (PAMIDRONATE DISODIUM) (UNKNOWN) [Concomitant]

REACTIONS (1)
  - Renal failure [None]
